FAERS Safety Report 9010336 (Version 1)
Quarter: 2013Q1

REPORT INFORMATION
  Report Type: Spontaneous
  Country: US (occurrence: US)
  Receive Date: 20130109
  Receipt Date: 20130109
  Transmission Date: 20140127
  Serious: Yes (Other)
  Sender: FDA-Public Use
  Company Number: US-MUTUAL PHARMACEUTICAL COMPANY, INC.-ALLP20130003

PATIENT
  Sex: Female

DRUGS (1)
  1. ALLOPURINOL [Suspect]
     Indication: NEPHROLITHIASIS
     Route: 048
     Dates: start: 1999, end: 1999

REACTIONS (6)
  - Bladder transitional cell carcinoma [Unknown]
  - Bladder cancer [Unknown]
  - Renal cancer [Unknown]
  - Blood urea increased [Unknown]
  - Blood creatinine increased [Unknown]
  - Abdominal pain upper [Recovered/Resolved]
